FAERS Safety Report 6573860-6 (Version None)
Quarter: 2010Q1

REPORT INFORMATION
  Report Type: 
  Country: None (occurrence: None)
  Receive Date: 20100204
  Receipt Date: 20100204
  Transmission Date: 20100710
  Serious: Yes (Hospitalization)
  Sender: FDA-Public Use
  Company Number: None

PATIENT
  Sex: Female
  Weight: 12.2562 kg

DRUGS (1)
  1. IPRATROPIUM BROMIDE [Suspect]
     Indication: ASTHMA
     Dosage: 250 MCG Q6H NEBULIZER

REACTIONS (1)
  - PUPILS UNEQUAL [None]
